FAERS Safety Report 5421475-5 (Version None)
Quarter: 2007Q3

REPORT INFORMATION
  Report Type: 
  Country: None (occurrence: None)
  Receive Date: 20070725
  Receipt Date: 20060828
  Transmission Date: 20080115
  Serious: Yes (Hospitalization, Other)
  Sender: FDA-Public Use
  Company Number: USA-2006-0025086

PATIENT
  Age: 63 Year
  Sex: Male

DRUGS (2)
  1. MORPHINE SULFATE [Suspect]
     Indication: HEADACHE
     Dosage: SEE TEXT, ORAL
     Route: 048
     Dates: start: 19990101
  2. CLONAZEPAM [Suspect]
     Indication: ANXIETY
     Dosage: SEE TEXT,
     Dates: start: 19930101

REACTIONS (2)
  - DETOXIFICATION [None]
  - DRUG DEPENDENCE [None]
